FAERS Safety Report 6565286-6 (Version None)
Quarter: 2010Q1

REPORT INFORMATION
  Report Type: 
  Country: None (occurrence: None)
  Receive Date: 20100201
  Receipt Date: 20100121
  Transmission Date: 20100710
  Serious: Yes (Hospitalization)
  Sender: FDA-Public Use
  Company Number: JP-ROCHE-681254

PATIENT
  Sex: Male

DRUGS (1)
  1. XELODA [Suspect]
     Indication: COLON CANCER
     Dosage: DRUG NAME: XELODA 300 (CAPECITABINE)
     Route: 048
     Dates: start: 20100113, end: 20100118

REACTIONS (1)
  - LEUKOENCEPHALOPATHY [None]
